FAERS Safety Report 22635334 (Version 1)
Quarter: 2023Q2

REPORT INFORMATION
  Report Type: Spontaneous
  Country: US (occurrence: None)
  Receive Date: 20230620
  Receipt Date: 20230620
  Transmission Date: 20230722
  Serious: Yes (Hospitalization)
  Sender: FDA-Public Use
  Company Number: None

PATIENT
  Age: 70 Year
  Sex: Female
  Weight: 43.09 kg

DRUGS (1)
  1. MIRCERA [Suspect]
     Active Substance: METHOXY POLYETHYLENE GLYCOL-EPOETIN BETA
     Indication: Anaemia
     Route: 042
     Dates: start: 20230616, end: 20230616

REACTIONS (7)
  - Dysphagia [None]
  - Dyspnoea [None]
  - Malaise [None]
  - Dizziness [None]
  - Fatigue [None]
  - Somnolence [None]
  - Dialysis [None]

NARRATIVE: CASE EVENT DATE: 20230616
